FAERS Safety Report 9799345 (Version 1)
Quarter: 2014Q1

REPORT INFORMATION
  Report Type: Spontaneous
  Country: US (occurrence: US)
  Receive Date: 20140106
  Receipt Date: 20140106
  Transmission Date: 20141002
  Serious: Yes (Hospitalization, Other)
  Sender: FDA-Public Use
  Company Number: US-PFIZER INC-2013373600

PATIENT
  Sex: Male

DRUGS (1)
  1. PRIMATENE [Suspect]
     Dosage: UNK

REACTIONS (1)
  - Dependence [Unknown]
